FAERS Safety Report 8059386-1 (Version None)
Quarter: 2012Q1

REPORT INFORMATION
  Report Type: 
  Country: None (occurrence: None)
  Receive Date: 20120113
  Receipt Date: 20120106
  Transmission Date: 20120608
  Serious: Yes (Hospitalization, Other)
  Sender: FDA-Public Use
  Company Number: 2011SP019498

PATIENT
  Sex: Female

DRUGS (5)
  1. TELAPREVIR [Suspect]
     Indication: HEPATITIS C
     Dates: start: 20110806, end: 20111022
  2. PEG-INTRON [Suspect]
     Indication: HEPATITIS C
     Dates: start: 20110806
  3. PEG-INTRON [Suspect]
     Indication: HEPATITIS C
     Dates: start: 20030101, end: 20030501
  4. REBETOL [Suspect]
     Indication: HEPATITIS C
     Dates: start: 20110806
  5. REBETOL [Suspect]
     Indication: HEPATITIS C
     Dates: start: 20030101, end: 20030501

REACTIONS (25)
  - DIARRHOEA [None]
  - APHAGIA [None]
  - HAEMATOCHEZIA [None]
  - ANAEMIA [None]
  - HYSTERECTOMY [None]
  - PAIN [None]
  - RESTLESS LEGS SYNDROME [None]
  - VOMITING [None]
  - EYE SWELLING [None]
  - OCULAR HYPERAEMIA [None]
  - GINGIVITIS [None]
  - INJECTION SITE ERYTHEMA [None]
  - INFECTIOUS MONONUCLEOSIS [None]
  - NAUSEA [None]
  - STAPHYLOCOCCAL INFECTION [None]
  - VISION BLURRED [None]
  - RASH [None]
  - IMMUNE SYSTEM DISORDER [None]
  - INSOMNIA [None]
  - COLITIS [None]
  - CLOSTRIDIAL INFECTION [None]
  - FUNGAL INFECTION [None]
  - BACK PAIN [None]
  - IMPETIGO [None]
  - PHARYNGITIS STREPTOCOCCAL [None]
